FAERS Safety Report 11339547 (Version 1)
Quarter: 2015Q3

REPORT INFORMATION
  Report Type: Spontaneous
  Country: US (occurrence: US)
  Receive Date: 20150805
  Receipt Date: 20150805
  Transmission Date: 20151125
  Serious: No
  Sender: FDA-Public Use
  Company Number: US-009507513-1508USA001316

PATIENT

DRUGS (1)
  1. PROVENTIL [Suspect]
     Active Substance: ALBUTEROL
     Dosage: (90 MCG 1 STANDARD DOSE OF 6.7), UNKNOWN
     Route: 055

REACTIONS (4)
  - Drug dose omission [Unknown]
  - Device occlusion [Unknown]
  - Product container issue [Unknown]
  - Product quality issue [Unknown]
